FAERS Safety Report 11563694 (Version 4)
Quarter: 2016Q2

REPORT INFORMATION
  Report Type: Report from Study
  Country: DE (occurrence: DE)
  Receive Date: 20150928
  Receipt Date: 20160505
  Transmission Date: 20160815
  Serious: Yes (Hospitalization, Other)
  Sender: FDA-Public Use
  Company Number: DE-ABBVIE-15K-062-1468851-00

PATIENT
  Age: 17 Year
  Sex: Female

DRUGS (3)
  1. HUMIRA [Suspect]
     Active Substance: ADALIMUMAB
     Indication: CROHN^S DISEASE
     Route: 058
     Dates: start: 20150826, end: 2016
  2. VITAMIN D [Concomitant]
     Active Substance: CHOLECALCIFEROL
     Indication: PRODUCT USED FOR UNKNOWN INDICATION
  3. VITAMIN B12 [Concomitant]
     Active Substance: CYANOCOBALAMIN
     Indication: PRODUCT USED FOR UNKNOWN INDICATION

REACTIONS (7)
  - Vomiting [Not Recovered/Not Resolved]
  - Pelvic venous thrombosis [Recovering/Resolving]
  - Diarrhoea haemorrhagic [Recovering/Resolving]
  - Drug ineffective [Not Recovered/Not Resolved]
  - General physical health deterioration [Recovering/Resolving]
  - Malaise [Recovering/Resolving]
  - Gastrointestinal viral infection [Recovering/Resolving]

NARRATIVE: CASE EVENT DATE: 20150904
